FAERS Safety Report 7932480-9 (Version None)
Quarter: 2011Q4

REPORT INFORMATION
  Report Type: 
  Country: None (occurrence: None)
  Receive Date: 20111122
  Receipt Date: 20111116
  Transmission Date: 20120403
  Serious: No
  Sender: FDA-Public Use
  Company Number: US-BIOGENIDEC-2010BI015559

PATIENT
  Sex: Male

DRUGS (1)
  1. TYSABRI [Suspect]
     Indication: MULTIPLE SCLEROSIS
     Route: 042
     Dates: start: 20091201

REACTIONS (18)
  - VESSEL PERFORATION [None]
  - NASAL CONGESTION [None]
  - ACNE [None]
  - SENSORY LOSS [None]
  - VESSEL PUNCTURE SITE HAEMORRHAGE [None]
  - MUSCLE TWITCHING [None]
  - BLEPHAROSPASM [None]
  - MULTIPLE SCLEROSIS [None]
  - INSOMNIA [None]
  - DRY SKIN [None]
  - INCREASED APPETITE [None]
  - URINARY RETENTION [None]
  - DYSURIA [None]
  - PLATELET COUNT INCREASED [None]
  - MUSCLE SPASMS [None]
  - ACTIVITIES OF DAILY LIVING IMPAIRED [None]
  - MUSCLE ATROPHY [None]
  - FATIGUE [None]
